FAERS Safety Report 21378584 (Version 1)
Quarter: 2022Q3

REPORT INFORMATION
  Report Type: Spontaneous
  Country: FR (occurrence: FR)
  Receive Date: 20220927
  Receipt Date: 20220927
  Transmission Date: 20221026
  Serious: Yes (Hospitalization)
  Sender: FDA-Public Use
  Company Number: None

PATIENT
  Age: 60 Year
  Sex: Female
  Weight: 80.7 kg

DRUGS (5)
  1. CLOPIDOGREL HYDROCHLORIDE [Interacting]
     Active Substance: CLOPIDOGREL HYDROCHLORIDE
     Indication: Peripheral arterial occlusive disease
     Dosage: CLOPIDOGREL (CHLORHYDRATE DE) , UNIT DOSE : 75 MG   , FREQUENCY TIME : 1 DAY  , DURATION : 16 YEARS
     Dates: start: 2006, end: 20220821
  2. FLUINDIONE [Interacting]
     Active Substance: FLUINDIONE
     Indication: Thrombosis prophylaxis
     Dosage: UNIT DOSE :40 MG   , FREQUENCY TIME : 1 DAY  , DURATION : 16 YEARS
     Dates: start: 2006, end: 20220821
  3. BROMAZEPAM [Concomitant]
     Active Substance: BROMAZEPAM
     Indication: Anxiolytic therapy
     Dosage: UNIT DOSE :6 MG   , FREQUENCY TIME : 1 DAY  , THERAPY START DATE : ASKU
  4. SIMVASTATIN [Concomitant]
     Active Substance: SIMVASTATIN
     Indication: Hypercholesterolaemia
     Dosage: UNIT DOSE : 40 MG  , FREQUENCY TIME : 1 DAY  , THERAPY START DATE : ASKU
  5. ESOMEPRAZOLE [Concomitant]
     Active Substance: ESOMEPRAZOLE
     Indication: Gastrooesophageal reflux disease
     Dosage: UNIT DOSE : 20 MG  , FREQUENCY TIME : 1 DAY  , THERAPY START DATE : ASKU

REACTIONS (2)
  - Shock haemorrhagic [Recovered/Resolved]
  - Drug interaction [Recovered/Resolved]

NARRATIVE: CASE EVENT DATE: 20220821
